FAERS Safety Report 24062011 (Version 1)
Quarter: 2024Q3

REPORT INFORMATION
  Report Type: Spontaneous
  Country: US (occurrence: US)
  Receive Date: 20240708
  Receipt Date: 20240708
  Transmission Date: 20241017
  Serious: Yes (Other)
  Sender: AMGEN
  Company Number: US-AMGEN-USASP2024132742

PATIENT
  Sex: Female

DRUGS (1)
  1. PREDNISONE [Suspect]
     Active Substance: PREDNISONE
     Indication: Thrombotic thrombocytopenic purpura
     Dosage: UNK
     Route: 065

REACTIONS (5)
  - Thrombotic thrombocytopenic purpura [Unknown]
  - Abortion spontaneous [Unknown]
  - Abortion induced [Unknown]
  - Pre-eclampsia [Unknown]
  - Maternal exposure during pregnancy [Unknown]
